FAERS Safety Report 4431207-5 (Version None)
Quarter: 2004Q3

REPORT INFORMATION
  Report Type: 
  Country: None (occurrence: None)
  Receive Date: 20040817
  Receipt Date: 20040804
  Transmission Date: 20050211
  Serious: Yes (Hospitalization)
  Sender: FDA-Public Use
  Company Number: PERI00204002633

PATIENT
  Age: 83 Year
  Sex: Female

DRUGS (8)
  1. COVERSYL (PERINDOPRIL) [Suspect]
     Indication: HYPERTENSION
     Dosage: 2 MG QD PO
     Route: 048
     Dates: start: 20040704, end: 20040706
  2. ATENOLOL [Suspect]
     Indication: ILL-DEFINED DISORDER
     Dosage: DAILY PO, 100 MG PO, 25 MG QD PO
     Route: 048
     Dates: end: 20040101
  3. ATENOLOL [Suspect]
     Indication: ILL-DEFINED DISORDER
     Dosage: DAILY PO, 100 MG PO, 25 MG QD PO
     Route: 048
     Dates: end: 20040101
  4. ATENOLOL [Suspect]
     Indication: ILL-DEFINED DISORDER
     Dosage: DAILY PO, 100 MG PO, 25 MG QD PO
     Route: 048
     Dates: end: 20040101
  5. ALCOHOL (ALCOHOL) [Suspect]
     Indication: ILL-DEFINED DISORDER
     Dosage: 1 DF DAILY PO
     Route: 048
     Dates: start: 20040704, end: 20040706
  6. BENDROFLUAZIDE [Concomitant]
  7. NIFEDIPINE [Concomitant]
  8. ACYCLOVIR [Concomitant]

REACTIONS (3)
  - ALCOHOL USE [None]
  - FALL [None]
  - HYPOTENSION [None]
